FAERS Safety Report 15611078 (Version 1)
Quarter: 2018Q4

REPORT INFORMATION
  Report Type: Spontaneous
  Country: US (occurrence: US)
  Receive Date: 20181113
  Receipt Date: 20181113
  Transmission Date: 20190205
  Serious: No
  Sender: FDA-Public Use
  Company Number: US-ROCHE-2011233

PATIENT
  Sex: Female
  Weight: 90.8 kg

DRUGS (2)
  1. TAXOL [Concomitant]
     Active Substance: PACLITAXEL
     Dosage: 10 WEEKS- (22 TREATMENTS)
     Route: 065
     Dates: start: 20161213
  2. HERCEPTIN [Suspect]
     Active Substance: TRASTUZUMAB
     Indication: HER-2 POSITIVE BREAST CANCER
     Route: 065
     Dates: start: 20161213

REACTIONS (10)
  - Pain [Not Recovered/Not Resolved]
  - Unevaluable event [Not Recovered/Not Resolved]
  - Pain in extremity [Not Recovered/Not Resolved]
  - Breast pain [Not Recovered/Not Resolved]
  - Arthralgia [Not Recovered/Not Resolved]
  - Insomnia [Not Recovered/Not Resolved]
  - Ill-defined disorder [Not Recovered/Not Resolved]
  - Pain [Unknown]
  - Unevaluable event [Unknown]
  - Breast pain [Unknown]
